FAERS Safety Report 4393301-7 (Version None)
Quarter: 2004Q3

REPORT INFORMATION
  Report Type: 
  Country: None (occurrence: None)
  Receive Date: 20040701
  Receipt Date: 20040616
  Transmission Date: 20050211
  Serious: Yes (Other)
  Sender: FDA-Public Use
  Company Number: EWC040639659

PATIENT
  Age: 64 Year
  Sex: Male

DRUGS (9)
  1. HUMALOG-. (LUSPRO) [Suspect]
     Indication: DIABETES MELLITUS INSULIN-DEPENDENT
     Dosage: 6 U/2 DAY
  2. HUMALOG [Suspect]
     Indication: DIABETES MELLITUS INSULIN-DEPENDENT
     Dosage: 12 U/1 DAY
  3. HUMULIN N [Suspect]
     Indication: DIABETES MELLITUS INSULIN-DEPENDENT
     Dosage: 10 U/1 DAY
  4. TENORMIN (ATENOLOL MEPHA) [Concomitant]
  5. NORVASC [Concomitant]
  6. ZESTRIL [Concomitant]
  7. ASPIRIN [Concomitant]
  8. DOXIUM (CALCIUM DOBESILATE) [Concomitant]
  9. CREON FORTE (PANCREATIN) [Concomitant]

REACTIONS (7)
  - DEVICE FAILURE [None]
  - DIABETIC NEUROPATHY [None]
  - DIFFICULTY IN WALKING [None]
  - HYPERGLYCAEMIA [None]
  - MEDICATION ERROR [None]
  - PAIN IN EXTREMITY [None]
  - PHARMACEUTICAL PRODUCT COMPLAINT [None]
